FAERS Safety Report 8291087 (Version 5)
Quarter: 2014Q1

REPORT INFORMATION
  Report Type: Report from Study
  Country: DE (occurrence: DE)
  Receive Date: 20111214
  Receipt Date: 20140213
  Transmission Date: 20141002
  Serious: Yes (Other)
  Sender: FDA-Public Use
  Company Number: DE-ROCHE-1021075

PATIENT
  Age: 51 Year
  Sex: Male
  Weight: 92 kg

DRUGS (15)
  1. RITUXIMAB [Suspect]
     Indication: PEMPHIGUS
     Route: 042
     Dates: start: 20100813, end: 20100813
  2. RITUXIMAB [Suspect]
     Route: 042
     Dates: start: 20100903, end: 20100903
  3. AZATHIOPRINE [Suspect]
     Indication: PEMPHIGUS
     Route: 048
     Dates: start: 20100810, end: 20100831
  4. AZATHIOPRINE [Suspect]
     Route: 048
     Dates: start: 20100901, end: 20100920
  5. AZATHIOPRINE [Suspect]
     Route: 048
     Dates: start: 20100924
  6. FORTECORTIN [Concomitant]
     Indication: PEMPHIGUS
     Route: 042
     Dates: start: 20100811, end: 20100913
  7. FORTECORTIN [Concomitant]
     Route: 042
     Dates: start: 20100901, end: 20100903
  8. BISOPROLOL [Concomitant]
     Indication: HYPERTENSION
     Route: 048
     Dates: start: 20100810
  9. FRAGMIN P FORTE [Concomitant]
     Indication: PROPHYLAXIS
     Route: 065
     Dates: start: 20100811, end: 20100813
  10. PANTOPRAZOL [Concomitant]
     Indication: PROPHYLAXIS
     Route: 048
     Dates: start: 20100810, end: 20100813
  11. VIGANTOLETTEN [Concomitant]
     Indication: PROPHYLAXIS
     Dosage: 1000 IE
     Route: 065
     Dates: start: 20100810, end: 20100813
  12. PARACETAMOL [Concomitant]
     Indication: PROPHYLAXIS
     Route: 048
     Dates: start: 20100813, end: 20100813
  13. PARACETAMOL [Concomitant]
     Route: 048
     Dates: start: 20100903, end: 20100903
  14. CETIRIZINE [Concomitant]
     Indication: PROPHYLAXIS
     Route: 048
     Dates: start: 20100813, end: 20100813
  15. CETIRIZINE [Concomitant]
     Route: 048
     Dates: start: 20100903, end: 20100903

REACTIONS (1)
  - Hepatic enzyme increased [Recovered/Resolved]
